FAERS Safety Report 21846824 (Version 4)
Quarter: 2024Q4

REPORT INFORMATION
  Report Type: Report from Study
  Country: US (occurrence: US)
  Receive Date: 20230111
  Receipt Date: 20241106
  Transmission Date: 20250114
  Serious: Yes (Hospitalization, Other)
  Sender: TAKEDA
  Company Number: US-TAKEDA-2023TUS003074

PATIENT
  Sex: Female

DRUGS (3)
  1. HUMAN IMMUNOGLOBULIN G [Suspect]
     Active Substance: HUMAN IMMUNOGLOBULIN G
     Indication: Primary immunodeficiency syndrome
     Dosage: UNK
     Route: 058
  2. HUMAN IMMUNOGLOBULIN G [Suspect]
     Active Substance: HUMAN IMMUNOGLOBULIN G
     Indication: Immunodeficiency common variable
     Dosage: 26 GRAM, 1/WEEK
     Route: 050
  3. HUMAN IMMUNOGLOBULIN G [Suspect]
     Active Substance: HUMAN IMMUNOGLOBULIN G
     Dosage: 26 GRAM, 1/WEEK
     Route: 042

REACTIONS (12)
  - Eczema [Unknown]
  - Catheter site haemorrhage [Unknown]
  - Haemophagocytic lymphohistiocytosis [Unknown]
  - COVID-19 [Unknown]
  - Vascular device infection [Unknown]
  - Impaired gastric emptying [Unknown]
  - Mast cell activation syndrome [Unknown]
  - Autoimmune neuropathy [Unknown]
  - Ehlers-Danlos syndrome [Unknown]
  - Illness [Unknown]
  - Blood glucose decreased [Unknown]
  - Multiple allergies [Unknown]
